FAERS Safety Report 22354650 (Version 2)
Quarter: 2023Q2

REPORT INFORMATION
  Report Type: Other
  Country: US (occurrence: US)
  Receive Date: 20230523
  Receipt Date: 20230530
  Transmission Date: 20230722
  Serious: Yes (Death, Hospitalization)
  Sender: FDA-Public Use
  Company Number: US-ALVOGEN-2023091490

PATIENT
  Age: 56 Year
  Sex: Male

DRUGS (10)
  1. DEXAMETHASONE [Suspect]
     Active Substance: DEXAMETHASONE
     Indication: COVID-19 pneumonia
  2. REMDESIVIR [Suspect]
     Active Substance: REMDESIVIR
     Indication: COVID-19 pneumonia
  3. TOCILIZUMAB [Suspect]
     Active Substance: TOCILIZUMAB
     Indication: COVID-19 pneumonia
  4. CEFTRIAXONE [Concomitant]
     Active Substance: CEFTRIAXONE
     Indication: Pneumonia
  5. AZITHROMYCIN [Concomitant]
     Active Substance: AZITHROMYCIN
     Indication: Pneumonia
  6. VASOPRESSIN [Concomitant]
     Active Substance: VASOPRESSIN
     Indication: Product used for unknown indication
     Dosage: ON HOSPITAL DAY 2, THE PATIENT REQUIRED INTUBATION AND ADDITIONAL PRESSOR SUPPORT.
  7. PHENYLEPHRINE [Concomitant]
     Active Substance: PHENYLEPHRINE HYDROCHLORIDE
     Indication: Product used for unknown indication
     Dosage: ON HOSPITAL DAY 2, THE PATIENT REQUIRED INTUBATION AND ADDITIONAL PRESSOR SUPPORT.
  8. EPINEPHRINE [Concomitant]
     Active Substance: EPINEPHRINE
     Indication: Product used for unknown indication
     Dosage: ON HOSPITAL DAY 2, THE PATIENT REQUIRED INTUBATION AND ADDITIONAL PRESSOR SUPPORT.
  9. VANCOMYCIN [Concomitant]
     Active Substance: VANCOMYCIN
     Indication: Product used for unknown indication
     Dosage: ANTIBIOTICS WERE BROADENED.
  10. CEFEPIME [Concomitant]
     Active Substance: CEFEPIME HYDROCHLORIDE
     Indication: Product used for unknown indication
     Dosage: ANTIBIOTICS WERE BROADENED.

REACTIONS (7)
  - Immunodeficiency [Fatal]
  - Haemophilus infection [Fatal]
  - Sepsis [Fatal]
  - Necrotising fasciitis [Fatal]
  - Purpura fulminans [Fatal]
  - Disseminated intravascular coagulation [Fatal]
  - Neurological decompensation [Fatal]
